FAERS Safety Report 19266511 (Version 1)
Quarter: 2021Q2

REPORT INFORMATION
  Report Type: Spontaneous
  Country: US (occurrence: US)
  Receive Date: 20210518
  Receipt Date: 20210518
  Transmission Date: 20210717
  Serious: No
  Sender: FDA-Public Use
  Company Number: US-AMGEN-USASP2021074591

PATIENT
  Age: 43 Year
  Sex: Female

DRUGS (2)
  1. SKYRIZI [Concomitant]
     Active Substance: RISANKIZUMAB-RZAA
  2. OTEZLA [Suspect]
     Active Substance: APREMILAST
     Indication: PSORIASIS
     Dosage: 30 MILLIGRAM, BID
     Route: 048

REACTIONS (2)
  - Illness [Not Recovered/Not Resolved]
  - Immune system disorder [Not Recovered/Not Resolved]
